FAERS Safety Report 13635445 (Version 1)
Quarter: 2017Q2

REPORT INFORMATION
  Report Type: Spontaneous
  Country: US (occurrence: US)
  Receive Date: 20170531
  Receipt Date: 20170531
  Transmission Date: 20170830
  Serious: No
  Sender: FDA-Public Use
  Company Number: US-ASTELLAS-1715231

PATIENT
  Sex: Female

DRUGS (17)
  1. AMLODIPINE [Concomitant]
     Active Substance: AMLODIPINE BESYLATE
  2. CARAFATE [Concomitant]
     Active Substance: SUCRALFATE
  3. HUMALOG [Concomitant]
     Active Substance: INSULIN LISPRO
  4. PRILOSEC [Concomitant]
     Active Substance: OMEPRAZOLE MAGNESIUM
  5. BACLOFEN. [Concomitant]
     Active Substance: BACLOFEN
  6. MOBIC [Concomitant]
     Active Substance: MELOXICAM
  7. TARCEVA [Suspect]
     Active Substance: ERLOTINIB HYDROCHLORIDE
     Indication: LUNG NEOPLASM MALIGNANT
     Route: 048
     Dates: start: 20160127
  8. AMIODARONE [Concomitant]
     Active Substance: AMIODARONE
  9. NORCO [Concomitant]
     Active Substance: ACETAMINOPHEN\HYDROCODONE BITARTRATE
  10. TOPROL XL [Concomitant]
     Active Substance: METOPROLOL SUCCINATE
  11. ATORVASTATIN [Concomitant]
     Active Substance: ATORVASTATIN
  12. BUMETANIDE. [Concomitant]
     Active Substance: BUMETANIDE
  13. CALCITONIN [Concomitant]
     Active Substance: CALCITONIN
  14. CYCLIZINE [Concomitant]
     Active Substance: CYCLIZINE
  15. XANAX [Concomitant]
     Active Substance: ALPRAZOLAM
  16. ZOCOR [Concomitant]
     Active Substance: SIMVASTATIN
  17. LISINOPRIL. [Concomitant]
     Active Substance: LISINOPRIL

REACTIONS (5)
  - Onychoclasis [Unknown]
  - Alopecia [Unknown]
  - Nerve compression [Unknown]
  - Dry skin [Unknown]
  - Diarrhoea [Unknown]
